FAERS Safety Report 19581453 (Version 1)
Quarter: 2021Q3

REPORT INFORMATION
  Report Type: Spontaneous
  Country: FR (occurrence: FR)
  Receive Date: 20210720
  Receipt Date: 20210720
  Transmission Date: 20211014
  Serious: Yes (Death)
  Sender: FDA-Public Use
  Company Number: FR-SUN PHARMACEUTICAL INDUSTRIES LTD-2021RR-305059

PATIENT
  Age: 35 Year
  Sex: Male

DRUGS (5)
  1. TRAMADOL. [Suspect]
     Active Substance: TRAMADOL
     Indication: PRODUCT USED FOR UNKNOWN INDICATION
     Dosage: 3 TABLETS A DAY ()
     Route: 048
     Dates: start: 2019
  2. DOLIPRANE [Suspect]
     Active Substance: ACETAMINOPHEN
     Indication: PRODUCT USED FOR UNKNOWN INDICATION
     Dosage: 1?4 A DAY ()
     Route: 048
     Dates: start: 2019
  3. HUMIRA [Suspect]
     Active Substance: ADALIMUMAB
     Indication: PSORIASIS
     Dosage: 40 MILLIGRAM, DAILY, 40 MG, 1D, SOLUTION FOR INJECTION IN PRE?FILLED PEN
     Route: 058
     Dates: start: 20180611, end: 20180911
  4. IBUPROFEN. [Suspect]
     Active Substance: IBUPROFEN
     Indication: PRODUCT USED FOR UNKNOWN INDICATION
     Dosage: 2 TABLETS A DAY ()
     Route: 048
     Dates: start: 2019
  5. HUMIRA [Suspect]
     Active Substance: ADALIMUMAB
     Dosage: 80 MILLIGRAM, DAILY, 80 MG, 1D, SOLUTION FOR INJECTION IN PRE?FILLED PEN
     Route: 058
     Dates: start: 20180924, end: 20181023

REACTIONS (2)
  - Pyrexia [Fatal]
  - Back pain [Fatal]

NARRATIVE: CASE EVENT DATE: 202102
